FAERS Safety Report 4953940-9 (Version None)
Quarter: 2006Q1

REPORT INFORMATION
  Report Type: 
  Country: None (occurrence: None)
  Receive Date: 20060327
  Receipt Date: 20060315
  Transmission Date: 20060701
  Serious: Yes (Other)
  Sender: FDA-Public Use
  Company Number: US-JNJFOC-20060303898

PATIENT
  Age: 64 Year
  Sex: Female

DRUGS (2)
  1. RAZADYNE [Suspect]
     Indication: DRUG USE FOR UNKNOWN INDICATION
  2. ROZEREM [Suspect]
     Indication: SLEEP DISORDER

REACTIONS (2)
  - DRUG PRESCRIBING ERROR [None]
  - NO ADVERSE DRUG EFFECT [None]
